FAERS Safety Report 6475148-0 (Version None)
Quarter: 2009Q4

REPORT INFORMATION
  Report Type: 
  Country: None (occurrence: None)
  Receive Date: 20091204
  Receipt Date: 20090526
  Transmission Date: 20100525
  Serious: Yes (Hospitalization, Other)
  Sender: FDA-Public Use
  Company Number: US-ELI_LILLY_AND_COMPANY-US200903001204

PATIENT
  Sex: Male

DRUGS (27)
  1. HUMALOG [Suspect]
     Dosage: 25 U, UNK
     Dates: start: 19990101
  2. LANTUS [Concomitant]
     Dosage: 70 U, EACH EVENING
  3. LISINOPRIL [Concomitant]
     Dosage: 20 MG, EACH EVENING
  4. LISINOPRIL AND HYDROCHLOROTHIAZIDE [Concomitant]
     Dosage: 25 MG, DAILY (1/D)
  5. COREG [Concomitant]
  6. FOLIC ACID [Concomitant]
     Dosage: 3 MG, DAILY (1/D)
  7. AMITRIPTYLINE [Concomitant]
     Dosage: 25 MG, EACH EVENING
  8. LORTAB [Concomitant]
     Dosage: UNK, UNK
  9. NORCO [Concomitant]
  10. TEMAZEPAM [Concomitant]
     Dosage: 30 MG, EACH EVENING
  11. FLINTSTONES [Concomitant]
  12. ASPIRIN [Concomitant]
  13. MAXZIDE [Concomitant]
  14. TYLENOL /SCH/ [Concomitant]
  15. CEFAZOLIN [Concomitant]
  16. DIAZEPAM [Concomitant]
  17. COLACE [Concomitant]
  18. LOVENOX [Concomitant]
  19. FENTANYL [Concomitant]
  20. HYDROCHLOROTHIAZIDE [Concomitant]
  21. HYDROMORPHONE HCL [Concomitant]
  22. REGLAN [Concomitant]
  23. LIDOCAINE [Concomitant]
  24. LORAZEPAM [Concomitant]
  25. METRONIDAZOLE [Concomitant]
  26. MAGNESIUM HYDROXIDE TAB [Concomitant]
  27. MULTI-VITAMIN [Concomitant]

REACTIONS (28)
  - BLINDNESS UNILATERAL [None]
  - BLOOD GLUCOSE INCREASED [None]
  - BURNING SENSATION [None]
  - CHEST PAIN [None]
  - CHOLELITHIASIS [None]
  - CYANOSIS [None]
  - DECREASED APPETITE [None]
  - DIABETIC NEUROPATHY [None]
  - DYSPNOEA [None]
  - FALL [None]
  - FRUSTRATION [None]
  - GANGRENE [None]
  - GOITRE [None]
  - HEPATIC STEATOSIS [None]
  - IMPAIRED HEALING [None]
  - JOINT INJURY [None]
  - LOCALISED INFECTION [None]
  - MOOD ALTERED [None]
  - MUSCLE SPASMS [None]
  - MYOCARDIAL INFARCTION [None]
  - NEUROPATHY PERIPHERAL [None]
  - OBESITY [None]
  - PAIN [None]
  - PAIN IN EXTREMITY [None]
  - POST PROCEDURAL HAEMORRHAGE [None]
  - RENAL FAILURE CHRONIC [None]
  - RETINOPATHY [None]
  - VISUAL ACUITY REDUCED [None]
